FAERS Safety Report 5398894-9 (Version None)
Quarter: 2007Q3

REPORT INFORMATION
  Report Type: 
  Country: None (occurrence: None)
  Receive Date: 20070727
  Receipt Date: 20070723
  Transmission Date: 20080115
  Serious: Yes (Other)
  Sender: FDA-Public Use
  Company Number: PHBS2007IN12324

PATIENT
  Age: 63 Year
  Sex: Male

DRUGS (1)
  1. VOVERAN [Suspect]
     Indication: BACK PAIN
     Dosage: 50 MG, QD
     Route: 048
     Dates: start: 20070721

REACTIONS (6)
  - COUGH [None]
  - DYSPNOEA [None]
  - MACROGLOSSIA [None]
  - PALPITATIONS [None]
  - PRURITUS [None]
  - RASH [None]
